FAERS Safety Report 8779896 (Version 1)
Quarter: 2012Q4

REPORT INFORMATION
  Report Type: 
  Country: US (occurrence: US)
  Receive Date: 20120912
  Receipt Date: 20120912
  Transmission Date: 20130627
  Serious: No
  Sender: FDA-Public Use
  Company Number: US-VERTEX PHARMACEUTICAL INC.-AE-2012-002209

PATIENT
  Age: 55 Year
  Sex: Male
  Weight: 90.91 kg

DRUGS (7)
  1. INCIVEK [Suspect]
     Indication: HEPATITIS C
     Route: 048
     Dates: start: 20111224
  2. PEGASYS [Concomitant]
     Indication: HEPATITIS C
     Route: 058
     Dates: start: 20111224
  3. RIBAVIRIN [Concomitant]
     Indication: HEPATITIS C
     Route: 048
     Dates: start: 20111224
  4. SPIRIVA [Concomitant]
     Indication: ASTHMA
     Route: 045
  5. ADVAIR DISC [Concomitant]
     Indication: ASTHMA
     Route: 045
  6. TYLENOL [Concomitant]
     Indication: DISCOMFORT
     Route: 048
  7. ASPIRIN [Concomitant]
     Indication: DISCOMFORT

REACTIONS (5)
  - Bronchitis [Not Recovered/Not Resolved]
  - Muscle spasms [Recovered/Resolved]
  - Urticaria [Not Recovered/Not Resolved]
  - Fatigue [Not Recovered/Not Resolved]
  - Anaemia [Not Recovered/Not Resolved]
